FAERS Safety Report 15466613 (Version 3)
Quarter: 2019Q1

REPORT INFORMATION
  Report Type: Report from Study
  Country: None (occurrence: US)
  Receive Date: 20181005
  Receipt Date: 20190108
  Transmission Date: 20190417
  Serious: Yes (Hospitalization, Other)
  Sender: FDA-Public Use
  Company Number: US-ABBVIE-18K-163-2395249-00

PATIENT
  Age: 60 Year
  Sex: Female

DRUGS (3)
  1. FLU VACCINE VII [Suspect]
     Active Substance: INFLUENZA VIRUS VACCINE
     Indication: PRODUCT USED FOR UNKNOWN INDICATION
     Route: 065
  2. HUMIRA [Suspect]
     Active Substance: ADALIMUMAB
     Indication: RHEUMATOID ARTHRITIS
     Route: 058
  3. HUMIRA [Suspect]
     Active Substance: ADALIMUMAB
     Route: 058

REACTIONS (22)
  - Spinal column stenosis [Unknown]
  - Allergy to vaccine [Unknown]
  - Sinusitis [Recovered/Resolved]
  - Sciatica [Unknown]
  - Rheumatoid arthritis [Unknown]
  - Chronic gastritis [Unknown]
  - Exostosis [Unknown]
  - Middle ear effusion [Unknown]
  - Hypoaesthesia [Recovering/Resolving]
  - Influenza [Recovered/Resolved]
  - Laryngitis [Unknown]
  - Intervertebral disc protrusion [Unknown]
  - Immunosuppression [Unknown]
  - Laboratory test abnormal [Recovering/Resolving]
  - Gastroenteritis [Unknown]
  - Sinus disorder [Unknown]
  - Nasopharyngitis [Unknown]
  - Gait disturbance [Recovering/Resolving]
  - Gastrooesophageal reflux disease [Unknown]
  - Inflammation [Unknown]
  - Injection site pain [Unknown]
  - Foot operation [Unknown]

NARRATIVE: CASE EVENT DATE: 2016
